FAERS Safety Report 9468327 (Version 11)
Quarter: 2015Q3

REPORT INFORMATION
  Report Type: Spontaneous
  Country: US (occurrence: US)
  Receive Date: 20130821
  Receipt Date: 20150708
  Transmission Date: 20151125
  Serious: Yes (Death, Hospitalization, Other)
  Sender: FDA-Public Use
  Company Number: US-MERCK-1308USA008029

PATIENT
  Sex: Female
  Weight: 80.73 kg

DRUGS (3)
  1. BYETTA [Suspect]
     Active Substance: EXENATIDE
     Indication: TYPE 2 DIABETES MELLITUS
     Dosage: 5 MG, BID
     Dates: start: 200510, end: 2007
  2. JANUVIA [Suspect]
     Active Substance: SITAGLIPTIN PHOSPHATE
     Indication: TYPE 2 DIABETES MELLITUS
     Dosage: 100 MG, QD
     Route: 048
     Dates: start: 200701, end: 200902
  3. JANUMET [Suspect]
     Active Substance: METFORMIN HYDROCHLORIDE\SITAGLIPTIN PHOSPHATE
     Dosage: 50/500 MG
     Route: 048

REACTIONS (68)
  - Aspiration [Unknown]
  - Hepatic encephalopathy [Unknown]
  - Gallbladder operation [Unknown]
  - Lymphadenopathy [Unknown]
  - Haematocrit decreased [Unknown]
  - Umbilical hernia [Unknown]
  - Post procedural complication [Unknown]
  - Hepatorenal syndrome [Unknown]
  - Ureteral stent insertion [Unknown]
  - Anaemia [Unknown]
  - Oedema [Unknown]
  - Haemoglobin decreased [Unknown]
  - Blood calcium decreased [Unknown]
  - Cystitis [Unknown]
  - Lymphadenopathy mediastinal [Unknown]
  - Escherichia test positive [Unknown]
  - Anal stenosis [Unknown]
  - Radiotherapy [Unknown]
  - Nausea [Unknown]
  - Pancreatectomy [Unknown]
  - Mental status changes [Unknown]
  - Pancreatitis chronic [Not Recovered/Not Resolved]
  - Hepatic cyst [Unknown]
  - Nephrolithiasis [Unknown]
  - Generalised oedema [Unknown]
  - White blood cell count decreased [Unknown]
  - Stent placement [Unknown]
  - Gastrointestinal motility disorder [Unknown]
  - Deep vein thrombosis [Unknown]
  - Cardio-respiratory arrest [Fatal]
  - Anaemia [Unknown]
  - Metastasis [Unknown]
  - Arteriosclerosis [Unknown]
  - Pleural effusion [Unknown]
  - Blood glucose increased [Unknown]
  - Renal cyst [Unknown]
  - Metastases to lung [Unknown]
  - Metastases to peritoneum [Unknown]
  - Renal failure [Unknown]
  - Pulmonary mass [Unknown]
  - Bile duct stenosis [Unknown]
  - Nephrolithiasis [Unknown]
  - Granuloma [Unknown]
  - Coagulopathy [Unknown]
  - Hypotension [Unknown]
  - Goitre [Unknown]
  - Pancreatic carcinoma metastatic [Fatal]
  - Metastases to lymph nodes [Unknown]
  - Osteoarthritis [Unknown]
  - Uterine leiomyoma [Unknown]
  - Nodule [Unknown]
  - Blood urea increased [Unknown]
  - Monocyte count decreased [Unknown]
  - Cystitis [Not Recovered/Not Resolved]
  - Hydronephrosis [Unknown]
  - Osteosclerosis [Unknown]
  - Pleural effusion [Unknown]
  - Acquired diaphragmatic eventration [Unknown]
  - Constipation [Unknown]
  - Splenectomy [Unknown]
  - Bile duct obstruction [Unknown]
  - Metabolic acidosis [Unknown]
  - Delayed recovery from anaesthesia [Recovered/Resolved]
  - Soft tissue mass [Unknown]
  - Haematuria [Recovered/Resolved]
  - Vaginal haemorrhage [Recovered/Resolved]
  - Blood magnesium decreased [Unknown]
  - Gastrooesophageal reflux disease [Unknown]

NARRATIVE: CASE EVENT DATE: 20070210
